FAERS Safety Report 4836708-3 (Version None)
Quarter: 2005Q4

REPORT INFORMATION
  Report Type: 
  Country: None (occurrence: None)
  Receive Date: 20051123
  Receipt Date: 20051115
  Transmission Date: 20060501
  Serious: Yes (Other)
  Sender: FDA-Public Use
  Company Number: FR-ABBOTT-05P-056-0317334-00

PATIENT
  Age: 82 Year
  Sex: Male

DRUGS (5)
  1. LIPANTHYL TABLET [Suspect]
     Indication: HYPERCHOLESTEROLAEMIA
     Route: 048
     Dates: end: 20051101
  2. LIPANTHYL TABLET [Suspect]
  3. GLIPIZIDE [Concomitant]
     Indication: DRUG USE FOR UNKNOWN INDICATION
  4. PANCREATIN [Concomitant]
     Indication: DRUG USE FOR UNKNOWN INDICATION
  5. ALFUZOSIN HYDROCHLORIDE [Concomitant]
     Indication: DRUG USE FOR UNKNOWN INDICATION

REACTIONS (5)
  - BLOOD CREATINE PHOSPHOKINASE INCREASED [None]
  - DIFFICULTY IN WALKING [None]
  - MUSCLE SPASMS [None]
  - MYALGIA [None]
  - RHABDOMYOLYSIS [None]
